FAERS Safety Report 7778568-7 (Version None)
Quarter: 2011Q3

REPORT INFORMATION
  Report Type: 
  Country: None (occurrence: None)
  Receive Date: 20110926
  Receipt Date: 20110914
  Transmission Date: 20111222
  Serious: No
  Sender: FDA-Public Use
  Company Number: US-BAYER-2011-086376

PATIENT
  Sex: Female

DRUGS (2)
  1. BEYAZ [Suspect]
     Dosage: QD
     Route: 048
  2. BEYAZ [Suspect]
     Dosage: QD
     Route: 048

REACTIONS (2)
  - MOOD SWINGS [None]
  - HEADACHE [None]
